FAERS Safety Report 4404132-3 (Version None)
Quarter: 2004Q3

REPORT INFORMATION
  Report Type: 
  Country: None (occurrence: None)
  Receive Date: 20040719
  Receipt Date: 20040709
  Transmission Date: 20050211
  Serious: Yes (Death, Hospitalization)
  Sender: FDA-Public Use
  Company Number: 04P-167-0266756-00

PATIENT
  Sex: Male

DRUGS (1)
  1. BIAXIN XL [Suspect]

REACTIONS (2)
  - HYPERSENSITIVITY [None]
  - PNEUMONIA [None]
